FAERS Safety Report 17413033 (Version 1)
Quarter: 2020Q1

REPORT INFORMATION
  Report Type: Spontaneous
  Country: US (occurrence: US)
  Receive Date: 20200212
  Receipt Date: 20200212
  Transmission Date: 20200409
  Serious: Yes (Other)
  Sender: FDA-Public Use
  Company Number: None

PATIENT
  Age: 39 Year
  Sex: Female
  Weight: 67.5 kg

DRUGS (9)
  1. GABAPENTIN. [Suspect]
     Active Substance: GABAPENTIN
     Indication: POST LAMINECTOMY SYNDROME
     Dosage: ?          QUANTITY:1 CAPSULE(S);?
     Route: 048
  2. ZYERTEC [Concomitant]
  3. ABBOTT SPINAL CORD STIMULATOR [Concomitant]
  4. LYRICA [Concomitant]
     Active Substance: PREGABALIN
  5. NORCO [Concomitant]
     Active Substance: ACETAMINOPHEN\HYDROCODONE BITARTRATE
  6. SAVELLA [Concomitant]
     Active Substance: MILNACIPRAN HYDROCHLORIDE
  7. VITAMIN C [Concomitant]
     Active Substance: ASCORBIC ACID
  8. GABAPENTIN. [Suspect]
     Active Substance: GABAPENTIN
     Indication: NEURALGIA
     Dosage: ?          QUANTITY:1 CAPSULE(S);?
     Route: 048
  9. VITAMIND D [Concomitant]

REACTIONS (4)
  - Drug ineffective [None]
  - General physical health deterioration [None]
  - Amnesia [None]
  - Acalculia [None]

NARRATIVE: CASE EVENT DATE: 20180716
